FAERS Safety Report 25336668 (Version 3)
Quarter: 2025Q3

REPORT INFORMATION
  Report Type: Spontaneous
  Country: EU (occurrence: EU)
  Receive Date: 20250520
  Receipt Date: 20250709
  Transmission Date: 20251020
  Serious: Yes (Other)
  Sender: LEO PHARM
  Company Number: EU-LEO Pharma-378685

PATIENT
  Age: 51 Year
  Sex: Female

DRUGS (3)
  1. ADBRY [Suspect]
     Active Substance: TRALOKINUMAB-LDRM
     Indication: Dermatitis atopic
     Dosage: EXP: NOV-2026?DEVICE: AS PER SD = INJECTIONS (NOT FURTHER SPECIFIED).?LAST ADMINISTRATION ON 17-MAR-
     Dates: start: 20231016, end: 20250317
  2. RAMIPRIL [Concomitant]
     Active Substance: RAMIPRIL
     Indication: Product used for unknown indication
  3. ETHINYL ESTRADIOL\LEVONORGESTREL [Concomitant]
     Active Substance: ETHINYL ESTRADIOL\LEVONORGESTREL
     Indication: Product used for unknown indication

REACTIONS (7)
  - Detachment of retinal pigment epithelium [Not Recovered/Not Resolved]
  - Visual impairment [Unknown]
  - Dermatitis atopic [Recovering/Resolving]
  - Disease recurrence [Recovering/Resolving]
  - Vision blurred [Unknown]
  - Immune system disorder [Unknown]
  - Drug ineffective [Unknown]

NARRATIVE: CASE EVENT DATE: 20241201
